FAERS Safety Report 8494146-9 (Version None)
Quarter: 2012Q3

REPORT INFORMATION
  Report Type: 
  Country: None (occurrence: None)
  Receive Date: 20120702
  Receipt Date: 20120702
  Transmission Date: 20120928
  Serious: Yes (Hospitalization)
  Sender: FDA-Public Use
  Company Number: None

PATIENT
  Age: 85 Year
  Sex: Male
  Weight: 74 kg

DRUGS (4)
  1. FERRIPROX [Suspect]
     Indication: IRON OVERLOAD
     Dosage: 5500 MG QD PO
     Route: 048
     Dates: start: 20120505
  2. SODIUM BICARBONATE [Concomitant]
  3. LANTUS [Concomitant]
  4. GLIPIZIDE [Concomitant]

REACTIONS (2)
  - UNRESPONSIVE TO STIMULI [None]
  - BLOOD GLUCOSE DECREASED [None]
